FAERS Safety Report 9706584 (Version 1)
Quarter: 2013Q4

REPORT INFORMATION
  Report Type: Spontaneous
  Country: US (occurrence: US)
  Receive Date: 20131125
  Receipt Date: 20131125
  Transmission Date: 20140711
  Serious: No
  Sender: FDA-Public Use
  Company Number: US-009507513-1311USA004338

PATIENT
  Sex: Female
  Weight: 54.42 kg

DRUGS (1)
  1. NUVARING [Suspect]
     Indication: CONTRACEPTION
     Dosage: .15/.12; ONE RING FOR THREE WEEKS, ONE RING-FREE WEEK
     Route: 067
     Dates: start: 2009

REACTIONS (3)
  - Device physical property issue [Unknown]
  - Device expulsion [Unknown]
  - No adverse event [Unknown]
